FAERS Safety Report 5315710-1 (Version None)
Quarter: 2007Q2

REPORT INFORMATION
  Report Type: 
  Country: None (occurrence: None)
  Receive Date: 20070503
  Receipt Date: 20070422
  Transmission Date: 20071010
  Serious: Yes (Congenital Anomaly, Other)
  Sender: FDA-Public Use
  Company Number: AR-KINGPHARMUSA00001-K200700513

PATIENT

DRUGS (2)
  1. TAPAZOLE [Suspect]
     Dosage: 50 MG, QD
     Route: 048
  2. TAPAZOLE [Suspect]
     Dosage: 30 MG, QD
     Route: 048

REACTIONS (3)
  - DEVELOPMENTAL DELAY [None]
  - DYSMORPHISM [None]
  - RADIOULNAR SYNOSTOSIS [None]
